FAERS Safety Report 9776028 (Version 1)
Quarter: 2013Q4

REPORT INFORMATION
  Report Type: Spontaneous
  Country: DE (occurrence: None)
  Receive Date: 20131219
  Receipt Date: 20131219
  Transmission Date: 20140711
  Serious: Yes (Congenital Anomaly, Other)
  Sender: FDA-Public Use
  Company Number: 2076065

PATIENT
  Sex: 0

DRUGS (6)
  1. PROPOFOL [Suspect]
     Dosage: 5.4. - 5.4. GESTATIONAL WEEK, TRANSPLACENTAL
     Route: 064
  2. ROCURONIUM BROMIDE [Suspect]
     Dosage: 5.4. - 5.4. GESTATIONAL WEEK, TRANSPLACENTAL
     Route: 064
  3. CAFEDRINE W/THEODRENALINE [Suspect]
     Dosage: 5.4. - 5.4. GESTATIONAL WEEK, TRANSPLACENTAL
     Route: 064
  4. FENTANYL [Suspect]
     Dosage: 5.4. - 5.4. GESTATIONAL WEEK, TRANSPLACENTAL
     Route: 064
  5. METAMIZOLE [Suspect]
     Dosage: 5.4. - 5.4. GESTATIONAL WEEK, TRANSPLACENTAL
     Route: 064
  6. SALBUTAMOL [Concomitant]

REACTIONS (2)
  - Maternal drugs affecting foetus [None]
  - Anencephaly [None]
